FAERS Safety Report 7148410-6 (Version None)
Quarter: 2010Q4

REPORT INFORMATION
  Report Type: 
  Country: None (occurrence: None)
  Receive Date: 20101209
  Receipt Date: 20101130
  Transmission Date: 20110411
  Serious: Yes (Hospitalization)
  Sender: FDA-Public Use
  Company Number: ES-ELI_LILLY_AND_COMPANY-ES201011007534

PATIENT
  Age: 54 Year
  Sex: Male

DRUGS (5)
  1. BYETTA [Suspect]
     Indication: TYPE 2 DIABETES MELLITUS
     Dosage: 5 UG, UNKNOWN
     Route: 058
     Dates: start: 20100112, end: 20100501
  2. METFORMIN HCL [Concomitant]
     Dosage: 850 MG, UNK
  3. MIXTARD HUMAN 70/30 [Concomitant]
     Dosage: 100 D/F, UNKNOWN
  4. LOPID [Concomitant]
     Dosage: 600 MG, UNKNOWN
  5. NOVOMIX /01475801/ [Concomitant]
     Dosage: 100 D/F, UNKNOWN

REACTIONS (3)
  - DYSPEPSIA [None]
  - HYPERAMYLASAEMIA [None]
  - PARAESTHESIA [None]
